FAERS Safety Report 12616137 (Version 1)
Quarter: 2016Q3

REPORT INFORMATION
  Report Type: Spontaneous
  Country: FR (occurrence: FR)
  Receive Date: 20160802
  Receipt Date: 20160802
  Transmission Date: 20161109
  Serious: Yes (Hospitalization)
  Sender: FDA-Public Use
  Company Number: FR-IMPAX LABORATORIES, INC-2016-IPXL-00809

PATIENT
  Age: 35 Year
  Sex: Male

DRUGS (3)
  1. BACLOFEN. [Suspect]
     Active Substance: BACLOFEN
     Dosage: 210 MG/D A?ER 4 MONTHS
     Route: 065
  2. BACLOFEN. [Suspect]
     Active Substance: BACLOFEN
     Dosage: 2000 MG, UNK
     Route: 065
  3. BACLOFEN. [Suspect]
     Active Substance: BACLOFEN
     Indication: ALCOHOL USE
     Dosage: UNK
     Route: 065

REACTIONS (9)
  - Delirium [Unknown]
  - Rhabdomyolysis [Unknown]
  - Confusional state [Recovered/Resolved]
  - Hypoxia [Unknown]
  - Coma scale abnormal [Unknown]
  - Suicide attempt [Unknown]
  - Off label use [Unknown]
  - Drug withdrawal syndrome [Unknown]
  - Lactic acidosis [Unknown]
